FAERS Safety Report 9128390 (Version 1)
Quarter: 2013Q1

REPORT INFORMATION
  Report Type: Spontaneous
  Country: US (occurrence: US)
  Receive Date: 20130228
  Receipt Date: 20130228
  Transmission Date: 20140127
  Serious: No
  Sender: FDA-Public Use
  Company Number: US-GLAXOSMITHKLINE-A0976411A

PATIENT
  Age: 50 Year
  Sex: Female

DRUGS (3)
  1. IMITREX [Suspect]
     Indication: MIGRAINE
     Dosage: 6MG AS REQUIRED
     Route: 058
     Dates: start: 20120503, end: 20120503
  2. ATENOLOL [Concomitant]
  3. TOPROL [Concomitant]

REACTIONS (2)
  - Injection site pain [Recovered/Resolved]
  - Product quality issue [Unknown]
